FAERS Safety Report 8013919-X (Version None)
Quarter: 2011Q4

REPORT INFORMATION
  Report Type: 
  Country: None (occurrence: None)
  Receive Date: 20111229
  Receipt Date: 20111216
  Transmission Date: 20120403
  Serious: Yes (Life-Threatening, Other)
  Sender: FDA-Public Use
  Company Number: FR-ROCHE-1021023

PATIENT
  Age: 63 Year
  Sex: Male

DRUGS (15)
  1. BOCEPREVIR [Suspect]
     Indication: HEPATITIS C
     Dates: start: 20110509
  2. LANTUS [Concomitant]
  3. MICONAZOLE [Concomitant]
     Dates: start: 20110722
  4. PEGASYS [Concomitant]
     Dates: start: 20060104
  5. SPECIAFOLDINE [Concomitant]
  6. TOPLEXIL (FRANCE) [Concomitant]
     Dates: start: 20110722
  7. VIRAFERONPEG [Suspect]
     Indication: HEPATITIS C
     Route: 058
     Dates: start: 20110330
  8. VIRAFERONPEG [Suspect]
     Route: 058
     Dates: start: 20110915
  9. LANSOPRAZOLE [Concomitant]
     Dates: start: 20110722
  10. NEORECORMON [Concomitant]
     Dates: start: 20090610
  11. COPEGUS [Suspect]
     Dates: start: 20110811
  12. FOLIC ACID [Concomitant]
  13. COPEGUS [Suspect]
     Indication: HEPATITIS C
     Dates: start: 20110330
  14. CORGARD [Concomitant]
  15. PEGASYS [Concomitant]
     Dates: start: 20051004, end: 20060103

REACTIONS (4)
  - HEPATIC NEOPLASM MALIGNANT [None]
  - THROMBOCYTOPENIA [None]
  - NON-HODGKIN'S LYMPHOMA [None]
  - ANAEMIA [None]
